FAERS Safety Report 9144306 (Version 2)
Quarter: 2013Q1

REPORT INFORMATION
  Report Type: Report from Study
  Country: US (occurrence: US)
  Receive Date: 20130306
  Receipt Date: 20130308
  Transmission Date: 20140127
  Serious: Yes (Hospitalization)
  Sender: FDA-Public Use
  Company Number: US-ABBOTT-13P-163-1055221-00

PATIENT
  Age: 61 Year
  Sex: Female

DRUGS (16)
  1. HUMIRA [Suspect]
     Indication: PSORIASIS
     Dates: start: 2008
  2. METFORMIN [Concomitant]
     Indication: DIABETES MELLITUS
     Dosage: 2 TABLETS TWICE A DAY
  3. ATENOLOL [Concomitant]
     Indication: HYPERTENSION
     Dosage: 25MG DAILY
  4. AMITRIPTYLINE [Concomitant]
     Indication: DEPRESSION
     Dosage: 25MG DAILY
  5. PRAVASTATIN [Concomitant]
     Indication: BLOOD CHOLESTEROL INCREASED
     Dosage: 40MG DAILY
  6. QUINAPRIL [Concomitant]
     Indication: HYPERTENSION
     Dosage: 10MG DAILY
  7. LEVOTHYROXINE [Concomitant]
     Indication: HYPOTHYROIDISM
     Dosage: 0.100MG DAILY
  8. RAMIPRIL [Concomitant]
     Indication: MYOCARDIAL INFARCTION
     Dosage: 2.5MG DAILY
  9. RAMIPRIL [Concomitant]
     Indication: CEREBROVASCULAR ACCIDENT
  10. CLOPIBOGREL [Concomitant]
     Indication: PRODUCT USED FOR UNKNOWN INDICATION
     Dosage: 75MG DAILY
  11. ASACOL [Concomitant]
     Indication: GASTRIC DISORDER
     Dosage: 2 TABLETS TWICE A DAY
  12. SULFASALAZINE [Concomitant]
     Indication: GASTRIC DISORDER
     Dosage: 2 TABLETS FOUR TIMES A DAY
  13. FISH OIL [Concomitant]
     Indication: PRODUCT USED FOR UNKNOWN INDICATION
     Dosage: 2000MG DAILY
  14. CALCIUM [Concomitant]
     Indication: PRODUCT USED FOR UNKNOWN INDICATION
     Dosage: DAILY
  15. GARLIC [Concomitant]
     Indication: PRODUCT USED FOR UNKNOWN INDICATION
     Dosage: DAILY
  16. CEDAX [Concomitant]
     Indication: PRODUCT USED FOR UNKNOWN INDICATION

REACTIONS (6)
  - Coronary artery occlusion [Recovered/Resolved]
  - Injection site pain [Unknown]
  - Dyspnoea [Recovered/Resolved]
  - Injection site erythema [Unknown]
  - Incorrect dose administered [Unknown]
  - Device malfunction [Unknown]
